FAERS Safety Report 13349125 (Version 2)
Quarter: 2017Q2

REPORT INFORMATION
  Report Type: Spontaneous
  Country: AU (occurrence: AU)
  Receive Date: 20170320
  Receipt Date: 20170404
  Transmission Date: 20170830
  Serious: Yes (Other)
  Sender: FDA-Public Use
  Company Number: AU-CONCORDIA PHARMACEUTICALS INC.-GSH201703-001764

PATIENT
  Age: 41 Year
  Sex: Female

DRUGS (4)
  1. ALPRAZOLAM. [Suspect]
     Active Substance: ALPRAZOLAM
     Indication: DEPRESSION
     Dosage: 1-2 MG DAILY
     Route: 065
  2. PIMOZIDE. [Suspect]
     Active Substance: PIMOZIDE
     Indication: DEPRESSION
     Dosage: 1-2 MG DAILY
     Route: 065
  3. DIAZEPAM. [Suspect]
     Active Substance: DIAZEPAM
     Indication: DEPRESSION
     Dosage: 5-10 MG DAILY
     Route: 065
  4. TRANYLCYPROMINE [Suspect]
     Active Substance: TRANYLCYPROMINE
     Indication: DEPRESSION
     Dosage: BETWEEN 100 MG AND 130 MG DAILY
     Route: 065

REACTIONS (3)
  - Exposure during pregnancy [Unknown]
  - Drug interaction [Unknown]
  - Stillbirth [Unknown]
